FAERS Safety Report 8366080-6 (Version None)
Quarter: 2012Q2

REPORT INFORMATION
  Report Type: 
  Country: None (occurrence: None)
  Receive Date: 20120517
  Receipt Date: 20120510
  Transmission Date: 20120825
  Serious: Yes (Life-Threatening, Hospitalization, Other)
  Sender: FDA-Public Use
  Company Number: FR-ELI_LILLY_AND_COMPANY-FR201205003502

PATIENT
  Sex: Male

DRUGS (3)
  1. STABLON [Concomitant]
     Indication: DEPRESSION
     Dosage: 37.5 MG, QD
     Route: 048
     Dates: start: 20080801
  2. LEPTICUR [Concomitant]
     Indication: PARKINSONISM
     Dosage: 10 MG, QD
     Route: 048
     Dates: start: 20080801
  3. ZYPREXA [Suspect]
     Indication: PSYCHOTIC DISORDER
     Dosage: 20 MG, QD
     Route: 048
     Dates: start: 20080801, end: 20120331

REACTIONS (6)
  - NEUROLEPTIC MALIGNANT SYNDROME [None]
  - LIVER INJURY [None]
  - ROAD TRAFFIC ACCIDENT [None]
  - LEUKOCYTOSIS [None]
  - RENAL FAILURE ACUTE [None]
  - SHOCK [None]
